FAERS Safety Report 4926352-1 (Version None)
Quarter: 2006Q1

REPORT INFORMATION
  Report Type: 
  Country: None (occurrence: None)
  Receive Date: 20060228
  Receipt Date: 20051103
  Transmission Date: 20060701
  Serious: No
  Sender: FDA-Public Use
  Company Number: US-GLAXOSMITHKLINE-A0580805A

PATIENT
  Age: 33 Year
  Sex: Female

DRUGS (4)
  1. LAMICTAL [Suspect]
     Dosage: 25MG PER DAY
     Route: 048
     Dates: start: 20051020
  2. SEROQUEL [Concomitant]
  3. KLONOPIN [Concomitant]
  4. TOPROL [Concomitant]

REACTIONS (4)
  - ERYTHEMA [None]
  - PRURITUS [None]
  - RASH [None]
  - RASH MACULAR [None]
